FAERS Safety Report 4542388-7 (Version None)
Quarter: 2004Q4

REPORT INFORMATION
  Report Type: 
  Country: None (occurrence: None)
  Receive Date: 20041229
  Receipt Date: 20041207
  Transmission Date: 20050328
  Serious: Yes (Hospitalization, Other)
  Sender: FDA-Public Use
  Company Number: 04-10-1374

PATIENT
  Age: 17 Year
  Sex: Male

DRUGS (8)
  1. CLOZAPINE [Suspect]
     Indication: PSYCHOTIC DISORDER
     Dosage: 300-75MG QD ORAL
     Route: 048
     Dates: start: 20040601
  2. CLOZAPINE [Suspect]
     Indication: SCHIZOPHRENIA
     Dosage: 300-75MG QD ORAL
     Route: 048
     Dates: start: 20040601
  3. VINCRISTINE [Suspect]
     Indication: SARCOMA
     Dates: start: 20040816
  4. CYTOXAN [Suspect]
     Indication: SARCOMA
     Dates: start: 20040816
  5. ADRIAMYCIN PFS [Suspect]
     Indication: SARCOMA
     Dates: start: 20040816
  6. ETOPOSIDE [Suspect]
     Indication: SARCOMA
     Dates: start: 20040816
  7. CISPLATIN [Suspect]
     Indication: SARCOMA
     Dates: start: 20040816
  8. IFOSFAMIDE [Suspect]
     Indication: SARCOMA

REACTIONS (12)
  - AGRANULOCYTOSIS [None]
  - ANAEMIA [None]
  - ANXIETY [None]
  - DRUG LEVEL INCREASED [None]
  - METASTASES TO BONE [None]
  - METASTASES TO LIVER [None]
  - NEUTROPENIA [None]
  - THERAPEUTIC AGENT TOXICITY [None]
  - THROMBOCYTOPENIA [None]
  - TREMOR [None]
  - UNDIFFERENTIATED SARCOMA [None]
  - WHITE BLOOD CELL COUNT DECREASED [None]
